FAERS Safety Report 10873489 (Version 1)
Quarter: 2015Q1

REPORT INFORMATION
  Report Type: Spontaneous
  Country: US (occurrence: None)
  Receive Date: 20150223
  Receipt Date: 20150223
  Transmission Date: 20150721
  Serious: Yes (Life-Threatening, Hospitalization)
  Sender: FDA-Public Use
  Company Number: None

PATIENT
  Age: 66 Year
  Sex: Male
  Weight: 70 kg

DRUGS (5)
  1. CISPLATIN. [Concomitant]
     Active Substance: CISPLATIN
  2. XGEVA [Suspect]
     Active Substance: DENOSUMAB
     Indication: SMALL CELL LUNG CANCER METASTATIC
     Dosage: Q4 WEEKS
     Route: 058
     Dates: start: 20150203
  3. LEUPRONE HEXAL [Concomitant]
     Active Substance: LEUPROLIDE ACETATE
  4. METFORMIN [Concomitant]
     Active Substance: METFORMIN HYDROCHLORIDE
  5. ETOPISIDE [Concomitant]

REACTIONS (5)
  - Fatigue [None]
  - Hypocalcaemia [None]
  - Muscle spasms [None]
  - Haemoglobin decreased [None]
  - Tremor [None]

NARRATIVE: CASE EVENT DATE: 20150219
